FAERS Safety Report 10344147 (Version 2)
Quarter: 2014Q3

REPORT INFORMATION
  Report Type: Report from Study
  Country: JP (occurrence: None)
  Receive Date: 20140724
  Receipt Date: 20140905
  Transmission Date: 20150326
  Serious: Yes (Hospitalization)
  Sender: FDA-Public Use
  Company Number: JP-016444

PATIENT
  Age: 86 Year
  Sex: Male
  Weight: 68 kg

DRUGS (4)
  1. CASODEX [Concomitant]
     Active Substance: BICALUTAMIDE
  2. ODYNE [Concomitant]
     Active Substance: FLUTAMIDE
  3. DAONIL [Suspect]
     Active Substance: GLYBURIDE
     Indication: DIABETES MELLITUS
     Dosage: 1.25MG ORAL QD,
  4. DEGARELIX (GONAX) (240 MG, 80 MG, 80 MG) [Suspect]
     Active Substance: DEGARELIX
     Indication: PROSTATE CANCER
     Route: 058
     Dates: start: 20130502, end: 20130502

REACTIONS (2)
  - Hypoglycaemia [None]
  - Pneumonia [None]

NARRATIVE: CASE EVENT DATE: 20140319
